FAERS Safety Report 4604798-9 (Version None)
Quarter: 2005Q1

REPORT INFORMATION
  Report Type: 
  Country: None (occurrence: None)
  Receive Date: 20050217
  Receipt Date: 20041108
  Transmission Date: 20050727
  Serious: No
  Sender: FDA-Public Use
  Company Number: S04-USA-07284-01

PATIENT
  Age: 88 Year
  Sex: Female

DRUGS (6)
  1. NAMENDA [Suspect]
     Indication: DEMENTIA ALZHEIMER'S TYPE
     Dosage: 5 MG BID PO
     Route: 048
     Dates: start: 20041107
  2. NAMENDA [Suspect]
     Indication: DEMENTIA ALZHEIMER'S TYPE
     Dosage: 5 MG QD PO
     Route: 048
     Dates: start: 20041031, end: 20041106
  3. ARICEPT [Concomitant]
  4. PROTONIX [Concomitant]
  5. MAXZIDE [Concomitant]
  6. EYE DROPS [Concomitant]

REACTIONS (1)
  - SOMNOLENCE [None]
